FAERS Safety Report 25615714 (Version 1)
Quarter: 2025Q3

REPORT INFORMATION
  Report Type: Report from Study
  Country: BR (occurrence: BR)
  Receive Date: 20250729
  Receipt Date: 20250729
  Transmission Date: 20251021
  Serious: Yes (Hospitalization, Other)
  Sender: JOHNSON AND JOHNSON
  Company Number: BR-JNJFOC-20250733826

PATIENT
  Age: 62 Year
  Sex: Female
  Weight: 98 kg

DRUGS (2)
  1. GOLIMUMAB [Suspect]
     Active Substance: GOLIMUMAB
     Indication: Rheumatoid arthritis
     Route: 058
     Dates: start: 202304
  2. GOLIMUMAB [Suspect]
     Active Substance: GOLIMUMAB

REACTIONS (6)
  - Nephrolithiasis [Unknown]
  - Congenital cystic kidney disease [Unknown]
  - Urinary tract infection [Unknown]
  - Arthralgia [Unknown]
  - Peripheral swelling [Unknown]
  - Drug ineffective [Unknown]
